FAERS Safety Report 5588538-5 (Version None)
Quarter: 2007Q4

REPORT INFORMATION
  Report Type: 
  Country: None (occurrence: None)
  Receive Date: 20071212
  Receipt Date: 20070817
  Transmission Date: 20080405
  Serious: No
  Sender: FDA-Public Use
  Company Number: 2007RL000371

PATIENT
  Age: 54 Year
  Sex: Male

DRUGS (3)
  1. LOVAZA [Suspect]
     Indication: DRUG USE FOR UNKNOWN INDICATION
     Dosage: 2 GM;QD;PO ; 2 GM;QD;PO
     Route: 048
     Dates: start: 20070101, end: 20070816
  2. LOVAZA [Suspect]
     Indication: DRUG USE FOR UNKNOWN INDICATION
     Dosage: 2 GM;QD;PO ; 2 GM;QD;PO
     Route: 048
     Dates: start: 20070701
  3. LIPITOR [Concomitant]

REACTIONS (2)
  - PARAESTHESIA [None]
  - PRURITUS [None]
